FAERS Safety Report 19131793 (Version 2)
Quarter: 2021Q3

REPORT INFORMATION
  Report Type: Spontaneous
  Country: US (occurrence: US)
  Receive Date: 20210414
  Receipt Date: 20210811
  Transmission Date: 20211014
  Serious: Yes (Other)
  Sender: FDA-Public Use
  Company Number: US-NOVOPROD-801226

PATIENT
  Sex: Male
  Weight: 103.4 kg

DRUGS (1)
  1. NOVOLIN R [Suspect]
     Active Substance: INSULIN HUMAN
     Indication: TYPE 2 DIABETES MELLITUS
     Dosage: 100 IU, BID + SLIDING SCALE
     Route: 058
     Dates: start: 2013

REACTIONS (2)
  - Hyperglycaemia [Not Recovered/Not Resolved]
  - Pancreatic failure [Not Recovered/Not Resolved]
